FAERS Safety Report 14145033 (Version 1)
Quarter: 2017Q4

REPORT INFORMATION
  Report Type: Spontaneous
  Country: US (occurrence: US)
  Receive Date: 20171031
  Receipt Date: 20171031
  Transmission Date: 20180321
  Serious: No
  Sender: FDA-Public Use
  Company Number: US-TAKEDA-2017MPI009539

PATIENT
  Sex: Male
  Weight: 70.3 kg

DRUGS (2)
  1. NINLARO [Suspect]
     Active Substance: IXAZOMIB CITRATE
     Indication: PLASMA CELL MYELOMA
     Dosage: 4 MG, UNK
     Route: 048
     Dates: start: 20170809
  2. NINLARO [Suspect]
     Active Substance: IXAZOMIB CITRATE
     Indication: HEAVY CHAIN DISEASE

REACTIONS (1)
  - Anaemia [Unknown]
